FAERS Safety Report 5916233-9 (Version None)
Quarter: 2008Q4

REPORT INFORMATION
  Report Type: 
  Country: None (occurrence: None)
  Receive Date: 20081013
  Receipt Date: 20080930
  Transmission Date: 20090506
  Serious: Yes (Hospitalization, Other)
  Sender: FDA-Public Use
  Company Number: US-AVENTIS-200815841US

PATIENT
  Age: 65 Year
  Sex: Female

DRUGS (4)
  1. LOVENOX [Suspect]
     Dosage: DOSE: UNK
     Route: 058
  2. PLAVIX [Suspect]
     Dosage: DOSE: UNK
     Route: 048
  3. ASPIRIN [Suspect]
     Dosage: DOSE: UNK
  4. COUMADIN [Suspect]
     Dosage: DOSE: UNK

REACTIONS (4)
  - DRUG INEFFECTIVE [None]
  - STENT OCCLUSION [None]
  - THROMBOSIS [None]
  - TRANSIENT ISCHAEMIC ATTACK [None]
